FAERS Safety Report 5468688-4 (Version None)
Quarter: 2007Q3

REPORT INFORMATION
  Report Type: 
  Country: None (occurrence: None)
  Receive Date: 20070926
  Receipt Date: 20070918
  Transmission Date: 20080115
  Serious: Yes (Other)
  Sender: FDA-Public Use
  Company Number: BR-SANOFI-SYNTHELABO-A01200707082

PATIENT
  Sex: Male

DRUGS (27)
  1. SUPERAN [Concomitant]
     Dosage: 50 MG
  2. ANZEMET [Concomitant]
     Dosage: 100 MG
     Route: 042
     Dates: start: 20061221
  3. GEMZAR [Concomitant]
     Route: 042
     Dates: start: 20061222, end: 20061222
  4. ELOXATIN [Suspect]
     Indication: PANCREATIC CARCINOMA
     Route: 042
     Dates: start: 20061221, end: 20061221
  5. ELOXATIN [Suspect]
     Indication: HEPATIC NEOPLASM
     Route: 042
     Dates: start: 20061221, end: 20061221
  6. ELOXATIN [Suspect]
     Route: 042
     Dates: start: 20070104, end: 20070104
  7. ELOXATIN [Suspect]
     Route: 042
     Dates: start: 20070104, end: 20070104
  8. ELOXATIN [Suspect]
     Route: 042
     Dates: start: 20070118, end: 20070118
  9. ELOXATIN [Suspect]
     Route: 042
     Dates: start: 20070118, end: 20070118
  10. ELOXATIN [Suspect]
     Route: 042
     Dates: start: 20070201, end: 20070201
  11. ELOXATIN [Suspect]
     Route: 042
     Dates: start: 20070201, end: 20070201
  12. ELOXATIN [Suspect]
     Route: 042
     Dates: start: 20070308, end: 20070308
  13. ELOXATIN [Suspect]
     Route: 042
     Dates: start: 20070308, end: 20070308
  14. ELOXATIN [Suspect]
     Route: 042
     Dates: start: 20070322, end: 20070322
  15. ELOXATIN [Suspect]
     Route: 042
     Dates: start: 20070322, end: 20070322
  16. ELOXATIN [Suspect]
     Route: 042
     Dates: start: 20070405, end: 20070405
  17. ELOXATIN [Suspect]
     Route: 042
     Dates: start: 20070405, end: 20070405
  18. ELOXATIN [Suspect]
     Route: 042
     Dates: start: 20070426, end: 20070426
  19. ELOXATIN [Suspect]
     Route: 042
     Dates: start: 20070426, end: 20070426
  20. ELOXATIN [Suspect]
     Route: 042
     Dates: start: 20070510, end: 20070510
  21. ELOXATIN [Suspect]
     Route: 042
     Dates: start: 20070510, end: 20070510
  22. ELOXATIN [Suspect]
     Route: 042
     Dates: start: 20070531, end: 20070531
  23. ELOXATIN [Suspect]
     Route: 042
     Dates: start: 20070531, end: 20070531
  24. ELOXATIN [Suspect]
     Route: 042
     Dates: start: 20070619, end: 20070619
  25. ELOXATIN [Suspect]
     Route: 042
     Dates: start: 20070619, end: 20070619
  26. ELOXATIN [Suspect]
     Route: 042
     Dates: start: 20070712, end: 20070712
  27. ELOXATIN [Suspect]
     Route: 042
     Dates: start: 20070712, end: 20070712

REACTIONS (9)
  - COUGH [None]
  - DYSPNOEA [None]
  - ERYTHEMA [None]
  - EYE PRURITUS [None]
  - LARYNGOSPASM [None]
  - OCULAR HYPERAEMIA [None]
  - PRURITUS [None]
  - THROAT TIGHTNESS [None]
  - TREMOR [None]
